FAERS Safety Report 19603189 (Version 3)
Quarter: 2021Q3

REPORT INFORMATION
  Report Type: Spontaneous
  Country: JP (occurrence: JP)
  Receive Date: 20210723
  Receipt Date: 20210823
  Transmission Date: 20211014
  Serious: Yes (Hospitalization, Other)
  Sender: FDA-Public Use
  Company Number: JP-OTSUKA-2021_025325

PATIENT
  Age: 68 Year
  Sex: Male

DRUGS (4)
  1. SAMSCA [Suspect]
     Active Substance: TOLVAPTAN
     Indication: CARDIAC FAILURE
  2. SAMSCA [Suspect]
     Active Substance: TOLVAPTAN
     Indication: PERICARDITIS
  3. MERCAZOLE [THIAMAZOLE] [Suspect]
     Active Substance: METHIMAZOLE
     Indication: PRODUCT USED FOR UNKNOWN INDICATION
     Dosage: UNK
     Route: 048
     Dates: end: 20210713
  4. SAMSCA [Suspect]
     Active Substance: TOLVAPTAN
     Indication: FLUID RETENTION
     Dosage: UNK
     Route: 048
     Dates: start: 20210608, end: 20210702

REACTIONS (5)
  - Hyperammonaemia [Unknown]
  - Hepatic failure [Unknown]
  - Product use in unapproved indication [Unknown]
  - Cardiac failure [Unknown]
  - Drug monitoring procedure incorrectly performed [Unknown]

NARRATIVE: CASE EVENT DATE: 20210615
